FAERS Safety Report 9980933 (Version 1)
Quarter: 2014Q1

REPORT INFORMATION
  Report Type: Report from Study
  Country: NL (occurrence: NL)
  Receive Date: 20140307
  Receipt Date: 20140307
  Transmission Date: 20141002
  Serious: Yes (Other)
  Sender: FDA-Public Use
  Company Number: NL-ROCHE-1358237

PATIENT
  Sex: 0

DRUGS (1)
  1. OMALIZUMAB [Suspect]
     Indication: ASTHMA
     Route: 065

REACTIONS (19)
  - Sepsis [Unknown]
  - Pulmonary embolism [Unknown]
  - Abortion spontaneous [Unknown]
  - Abortion missed [Unknown]
  - Foetal death [Unknown]
  - Oxygen saturation decreased [Unknown]
  - Asthma [Unknown]
  - Chest discomfort [Unknown]
  - Oedema [Unknown]
  - Dyspnoea [Unknown]
  - Dyspnoea at rest [Unknown]
  - Dry mouth [Unknown]
  - Hypotension [Unknown]
  - Transposition of the great vessels [Unknown]
  - Dizziness [Unknown]
  - Headache [Unknown]
  - Tremor [Unknown]
  - Hyperhidrosis [Unknown]
  - Flushing [Unknown]
